FAERS Safety Report 8345346-X (Version None)
Quarter: 2012Q2

REPORT INFORMATION
  Report Type: 
  Country: None (occurrence: None)
  Receive Date: 20120504
  Receipt Date: 20120419
  Transmission Date: 20120825
  Serious: Yes (Hospitalization)
  Sender: FDA-Public Use
  Company Number: DSA_56268_2012

PATIENT
  Age: 59 Year
  Sex: Female

DRUGS (1)
  1. ENALAPRIL MALEATE [Suspect]
     Indication: HYPERTENSION
     Dosage: 20 MG QD, ORAL
     Route: 048
     Dates: start: 20050601

REACTIONS (3)
  - ANXIETY [None]
  - INSOMNIA [None]
  - DEPRESSION [None]
